FAERS Safety Report 11315462 (Version 2)
Quarter: 2015Q3

REPORT INFORMATION
  Report Type: Spontaneous
  Country: AU (occurrence: AU)
  Receive Date: 20150728
  Receipt Date: 20150903
  Transmission Date: 20151125
  Serious: Yes (Life-Threatening, Hospitalization)
  Sender: FDA-Public Use
  Company Number: AU-ALKEM-001098

PATIENT
  Age: 44 Year
  Sex: Male

DRUGS (3)
  1. EXENATIDE [Concomitant]
     Active Substance: EXENATIDE
     Indication: TYPE 2 DIABETES MELLITUS
  2. GLICLAZIDE [Suspect]
     Active Substance: GLICLAZIDE
     Indication: TYPE 2 DIABETES MELLITUS
     Dosage: INGESTED APPROXIMATELY 35 TABLETS, TOTAL DOSE OF 2.1 G
  3. METFORMIN [Suspect]
     Active Substance: METFORMIN HYDROCHLORIDE
     Indication: TYPE 2 DIABETES MELLITUS
     Dosage: INGESTED APPROXIMATELY 35 TABLETS, TOTAL DOSE OF 35 G.

REACTIONS (12)
  - Fluid overload [Recovered/Resolved]
  - Encephalopathy [Recovered/Resolved]
  - Acute kidney injury [Recovered/Resolved]
  - Pulmonary hypertension [Recovered/Resolved]
  - Acute lung injury [Recovered/Resolved]
  - Right ventricular dysfunction [Recovered/Resolved]
  - Distributive shock [Recovered/Resolved]
  - Metabolic acidosis [Recovered/Resolved]
  - Hypoglycaemia [Recovered/Resolved]
  - Lactic acidosis [Recovered/Resolved]
  - Intentional overdose [Unknown]
  - Cardiopulmonary failure [Recovered/Resolved]
